FAERS Safety Report 16833707 (Version 1)
Quarter: 2019Q3

REPORT INFORMATION
  Report Type: Other
  Country: IE (occurrence: IE)
  Receive Date: 20190920
  Receipt Date: 20190920
  Transmission Date: 20191005
  Serious: Yes (Other)
  Sender: FDA-Public Use
  Company Number: IE-COLLEGIUM PHARMACEUTICAL, INC.-IE-2019COL001097

PATIENT
  Age: 67 Year
  Sex: Female

DRUGS (3)
  1. AMITRIPTYLINE [Concomitant]
     Active Substance: AMITRIPTYLINE
     Indication: SPINAL FUSION SURGERY
     Dosage: UNK
  2. TAPENTADOL EXTENDED RELEASE [Suspect]
     Active Substance: TAPENTADOL
     Indication: POSTOPERATIVE ANALGESIA
     Dosage: 200 MG, QD
     Route: 048
     Dates: start: 20190318, end: 20190321
  3. PREGABALIN. [Concomitant]
     Active Substance: PREGABALIN
     Indication: SPINAL FUSION SURGERY
     Dosage: UNK

REACTIONS (3)
  - Dizziness [Recovered/Resolved]
  - Drug interaction [Recovered/Resolved]
  - Depressed mood [Recovered/Resolved]

NARRATIVE: CASE EVENT DATE: 20190320
